FAERS Safety Report 8277534-5 (Version None)
Quarter: 2012Q2

REPORT INFORMATION
  Report Type: 
  Country: None (occurrence: None)
  Receive Date: 20120412
  Receipt Date: 20120409
  Transmission Date: 20120825
  Serious: Yes (Hospitalization)
  Sender: FDA-Public Use
  Company Number: US-MERCK-1204USA01079

PATIENT
  Age: 63 Year
  Sex: Female
  Weight: 98 kg

DRUGS (15)
  1. LYRICA [Concomitant]
     Indication: CHRONIC FATIGUE SYNDROME
     Route: 048
     Dates: start: 20060701
  2. AMBIEN CR [Concomitant]
     Indication: SLEEP DISORDER
     Route: 048
     Dates: start: 20100327
  3. PAXIL [Concomitant]
     Indication: DEPRESSION
     Route: 048
     Dates: start: 20020201
  4. NAPROXEN [Concomitant]
     Indication: OSTEOARTHRITIS
     Route: 065
  5. ZOCOR [Suspect]
     Route: 048
     Dates: start: 20110209
  6. XANAX [Concomitant]
     Indication: POOR QUALITY SLEEP
     Route: 065
     Dates: start: 20090114
  7. SYNTHROID [Concomitant]
     Indication: HYPOTHYROIDISM
     Route: 048
     Dates: start: 20100920
  8. PAXIL [Concomitant]
     Indication: SOCIAL PHOBIA
     Route: 048
     Dates: start: 20020201
  9. METHOTREXATE [Concomitant]
     Indication: PSORIASIS
     Route: 065
  10. VICODIN [Concomitant]
     Indication: PAIN
     Route: 065
     Dates: start: 20070901
  11. OXYCONTIN [Concomitant]
     Indication: PAIN
     Route: 065
     Dates: start: 20110110
  12. OXYCONTIN [Concomitant]
     Indication: FIBROMYALGIA
     Route: 065
     Dates: start: 20110110
  13. LYRICA [Concomitant]
     Indication: PAIN IN EXTREMITY
     Route: 048
     Dates: start: 20060701
  14. XANAX [Concomitant]
     Indication: ANXIETY
     Route: 065
     Dates: start: 20090114
  15. ZOCOR [Suspect]
     Indication: BLOOD CHOLESTEROL INCREASED
     Route: 048
     Dates: start: 20100601

REACTIONS (1)
  - ARTHROPATHY [None]
